FAERS Safety Report 21976585 (Version 1)
Quarter: 2023Q1

REPORT INFORMATION
  Report Type: Spontaneous
  Country: RO (occurrence: RO)
  Receive Date: 20230210
  Receipt Date: 20230210
  Transmission Date: 20230417
  Serious: Yes (Other)
  Sender: FDA-Public Use
  Company Number: RO-AUROBINDO-AUR-APL-2022-055005

PATIENT
  Age: 35 Year

DRUGS (2)
  1. AMOXICILLIN\CLAVULANIC ACID [Suspect]
     Active Substance: AMOXICILLIN\CLAVULANIC ACID
     Indication: Evidence based treatment
     Dosage: 6G PER DAY
     Route: 065
  2. CIPROFLOXACIN [Suspect]
     Active Substance: CIPROFLOXACIN
     Indication: Evidence based treatment
     Dosage: 400 MILLIGRAM, ONCE A DAY
     Route: 065

REACTIONS (4)
  - Delirium [Unknown]
  - Pyrexia [Unknown]
  - Cough [Unknown]
  - Agitation [Unknown]
